FAERS Safety Report 7957581-0 (Version None)
Quarter: 2011Q4

REPORT INFORMATION
  Report Type: 
  Country: None (occurrence: None)
  Receive Date: 20111205
  Receipt Date: 20111130
  Transmission Date: 20120403
  Serious: Yes (Congenital Anomaly)
  Sender: FDA-Public Use
  Company Number: JP-GLAXOSMITHKLINE-B0766607A

PATIENT
  Sex: Male
  Weight: 3.9 kg

DRUGS (7)
  1. LAMICTAL [Suspect]
     Indication: EPILEPSY
     Route: 064
  2. LAMICTAL [Suspect]
     Dosage: 300MG PER DAY
     Route: 064
  3. LAMICTAL [Suspect]
     Dosage: 200MG PER DAY
     Route: 064
     Dates: start: 20101101
  4. DEPAKENE [Suspect]
     Indication: EPILEPSY
     Dosage: 600MG PER DAY
     Route: 064
     Dates: start: 20070901, end: 20101227
  5. LAMICTAL [Suspect]
     Dosage: 400MG PER DAY
     Route: 064
  6. DEPAKENE [Suspect]
     Dosage: 200MG PER DAY
     Route: 064
     Dates: start: 20101228, end: 20101230
  7. PHENOBARBITAL TAB [Concomitant]
     Indication: SOMNOLENCE
     Dosage: 30MG PER DAY
     Route: 064
     Dates: start: 20101004, end: 20101101

REACTIONS (2)
  - SPINE MALFORMATION [None]
  - FOETAL EXPOSURE DURING PREGNANCY [None]
